FAERS Safety Report 4943535-5 (Version None)
Quarter: 2006Q1

REPORT INFORMATION
  Report Type: 
  Country: None (occurrence: None)
  Receive Date: 20060309
  Receipt Date: 20060301
  Transmission Date: 20060701
  Serious: Yes (Other)
  Sender: FDA-Public Use
  Company Number: MC200600179

PATIENT
  Age: 60 Year
  Sex: Female
  Weight: 136.1 kg

DRUGS (4)
  1. ANGIOMAX [Suspect]
     Indication: CORONARY ANGIOPLASTY
     Dosage: BOLUS, IV BOLUS
     Route: 042
     Dates: start: 20060301, end: 20060301
  2. ANGIOMAX [Suspect]
     Indication: CORONARY ANGIOPLASTY
     Dosage: BOLUS, IV BOLUS
     Route: 042
     Dates: start: 20060301
  3. ASPIRIN [Concomitant]
  4. PLAVIX [Concomitant]

REACTIONS (2)
  - CORONARY ARTERY PERFORATION [None]
  - IATROGENIC INJURY [None]
